FAERS Safety Report 13665214 (Version 1)
Quarter: 2017Q2

REPORT INFORMATION
  Report Type: Spontaneous
  Country: US (occurrence: US)
  Receive Date: 20170619
  Receipt Date: 20170619
  Transmission Date: 20170830
  Serious: Yes (Disabling)
  Sender: FDA-Public Use
  Company Number: None

PATIENT
  Age: 48 Year
  Sex: Female
  Weight: 76.5 kg

DRUGS (13)
  1. VIT. B [Concomitant]
  2. COD LIVER OIL [Concomitant]
     Active Substance: COD LIVER OIL
  3. NEXIUM [Concomitant]
     Active Substance: ESOMEPRAZOLE MAGNESIUM
  4. BIOTIN [Concomitant]
     Active Substance: BIOTIN
  5. NETTLE LEAF [Concomitant]
  6. LIONS MANE [Concomitant]
  7. L-LYSINE [Concomitant]
     Active Substance: LYSINE
  8. BRAHMI [Concomitant]
  9. D [Concomitant]
  10. ZANTAC [Concomitant]
     Active Substance: RANITIDINE HYDROCHLORIDE
  11. C [Concomitant]
  12. ALPRAZOLAM. [Suspect]
     Active Substance: ALPRAZOLAM
     Indication: ANXIETY
     Dosage: ?          QUANTITY:180 TABLET(S);?
     Route: 048
     Dates: start: 20040301, end: 20170119
  13. TUMERIC [Concomitant]
     Active Substance: HERBALS\TURMERIC

REACTIONS (42)
  - Therapy cessation [None]
  - Flushing [None]
  - Pyrexia [None]
  - Altered visual depth perception [None]
  - Derealisation [None]
  - Nervousness [None]
  - Muscle tightness [None]
  - Vitreous floaters [None]
  - Depersonalisation/derealisation disorder [None]
  - Drug tolerance increased [None]
  - Visual impairment [None]
  - Fluid intake reduced [None]
  - Joint crepitation [None]
  - Chest discomfort [None]
  - Tongue movement disturbance [None]
  - Stress [None]
  - Hypoaesthesia oral [None]
  - Hallucinations, mixed [None]
  - Amnesia [None]
  - Drug withdrawal syndrome [None]
  - Nausea [None]
  - Insomnia [None]
  - Headache [None]
  - Migraine with aura [None]
  - Vision blurred [None]
  - Bone disorder [None]
  - Tinnitus [None]
  - Photophobia [None]
  - Memory impairment [None]
  - Cognitive disorder [None]
  - Intrusive thoughts [None]
  - Drug ineffective [None]
  - Dizziness [None]
  - Feeding disorder [None]
  - Muscle twitching [None]
  - Tremor [None]
  - Muscle spasms [None]
  - Hypertension [None]
  - Dysphagia [None]
  - Pain [None]
  - Hypoaesthesia [None]
  - Weight decreased [None]

NARRATIVE: CASE EVENT DATE: 20170120
